FAERS Safety Report 9293533 (Version 1)
Quarter: 2013Q2

REPORT INFORMATION
  Report Type: Spontaneous
  Country: BR (occurrence: BR)
  Receive Date: 20130516
  Receipt Date: 20130516
  Transmission Date: 20140414
  Serious: Yes (Other)
  Sender: FDA-Public Use
  Company Number: BR-SANOFI-AVENTIS-2013SA047476

PATIENT
  Sex: Female
  Weight: 51.5 kg

DRUGS (4)
  1. CLEXANE [Suspect]
     Indication: HYPERCOAGULATION
     Dosage: STRENGTH-40MG
     Route: 065
     Dates: start: 2011
  2. FILGRASTIM [Concomitant]
     Dosage: TAKEN FROM: 1 WEEK AFTER IN VITRO FERTILISATION.
     Route: 065
  3. UTROGESTAN [Concomitant]
     Dosage: TEKEN FROM: 1 WEEK BEFORE IN VITRO FERTILISATION
     Route: 065
  4. ESTRADIOL [Concomitant]
     Dosage: TAKEN FROM: 1 WEEK BEFORE IN VITRO FERTILISATION.
     Route: 065

REACTIONS (2)
  - Abortion spontaneous [Unknown]
  - Exposure during pregnancy [Unknown]
